FAERS Safety Report 24800072 (Version 1)
Quarter: 2025Q1

REPORT INFORMATION
  Report Type: Spontaneous
  Country: GB (occurrence: GB)
  Receive Date: 20250102
  Receipt Date: 20250102
  Transmission Date: 20250409
  Serious: Yes (Other)
  Sender: MYLAN
  Company Number: GB-MHRA-TPP31490949C9870968YC1735049565465

PATIENT
  Age: 82 Year
  Sex: Female
  Weight: 60 kg

DRUGS (4)
  1. ATORVASTATIN [Suspect]
     Active Substance: ATORVASTATIN
     Indication: Ill-defined disorder
     Dosage: 1 DOSAGE FORM, QD (TAKE ONE TABLET DAILY)
     Route: 065
     Dates: start: 20241017, end: 20241224
  2. BETNOVATE [Concomitant]
     Active Substance: BETAMETHASONE
     Indication: Ill-defined disorder
     Route: 065
     Dates: start: 20241120, end: 20241211
  3. Zerobase [Concomitant]
     Indication: Ill-defined disorder
     Dosage: UNK, BID (APPLY TWICE A DAY AND WHEN REQUIRED AS A SKIN)
     Route: 065
     Dates: start: 20240115
  4. LOSARTAN [Concomitant]
     Active Substance: LOSARTAN
     Indication: Ill-defined disorder
     Dosage: 1 DOSAGE FORM, QD (TAKE ONE TABLET DAILY)
     Route: 065
     Dates: start: 20240924

REACTIONS (2)
  - Myalgia [Recovered/Resolved]
  - Drug intolerance [Unknown]
